FAERS Safety Report 6709545-2 (Version None)
Quarter: 2010Q2

REPORT INFORMATION
  Report Type: 
  Country: None (occurrence: None)
  Receive Date: 20100429
  Receipt Date: 20090626
  Transmission Date: 20101027
  Serious: No
  Sender: FDA-Public Use
  Company Number: 2009-00323

PATIENT
  Age: 56 Year
  Sex: Female
  Weight: 95.2554 kg

DRUGS (3)
  1. ZICAM ALLERGY RELIEF GEL SWABS [Suspect]
     Dosage: 1 DOSE
     Dates: start: 20090601
  2. SYNTHROID [Concomitant]
  3. VITAMIN D [Concomitant]

REACTIONS (2)
  - AGEUSIA [None]
  - ANOSMIA [None]
